FAERS Safety Report 8354678-0 (Version None)
Quarter: 2012Q2

REPORT INFORMATION
  Report Type: 
  Country: None (occurrence: None)
  Receive Date: 20120511
  Receipt Date: 20120509
  Transmission Date: 20120825
  Serious: Yes (Death, Life-Threatening, Hospitalization, Other)
  Sender: FDA-Public Use
  Company Number: JP-PFIZER INC-2012053098

PATIENT
  Age: 16 Year
  Sex: Female
  Weight: 47 kg

DRUGS (10)
  1. GABAPENTIN [Suspect]
     Dosage: 400 MG, 3X/DAY
     Dates: start: 20091228, end: 20100203
  2. TOPIRAMATE [Concomitant]
     Indication: EPILEPSY
     Dosage: 50 MG, 2X/DAY
     Dates: start: 20100210, end: 20100216
  3. GABAPENTIN [Suspect]
     Dosage: 400 MG, 3X/DAY
     Dates: start: 20100222, end: 20100308
  4. GABAPENTIN [Suspect]
     Indication: EPILEPSY
     Dosage: 200 MG, 3X/DAY
     Dates: start: 20091224, end: 20091227
  5. TEGRETOL [Concomitant]
     Dosage: 200 MG, 3X/DAY
     Dates: start: 20100213, end: 20100225
  6. TEGRETOL [Concomitant]
     Indication: EPILEPSY
     Dosage: 200 MG, 1X/DAY
     Dates: start: 20100204, end: 20100212
  7. TOPIRAMATE [Concomitant]
     Dosage: 100 MG, 2X/DAY
     Dates: start: 20100217, end: 20100226
  8. HEPARIN [Concomitant]
     Indication: THROMBOSIS PROPHYLAXIS
     Dosage: 10000 DF, 1X/DAY
     Route: 042
     Dates: start: 20100106, end: 20100108
  9. GABAPENTIN [Suspect]
     Dosage: 200 MG, 3X/DAY
     Dates: start: 20100219, end: 20100221
  10. FAMOTIDINE [Suspect]
     Indication: ENCEPHALOPATHY
     Dosage: 20 MG, 1X/DAY
     Dates: start: 20100101, end: 20100108

REACTIONS (3)
  - PULMONARY ALVEOLAR HAEMORRHAGE [None]
  - APLASTIC ANAEMIA [None]
  - STATUS EPILEPTICUS [None]
